FAERS Safety Report 5728394-5 (Version None)
Quarter: 2008Q2

REPORT INFORMATION
  Report Type: 
  Country: None (occurrence: None)
  Receive Date: 20080506
  Receipt Date: 20080430
  Transmission Date: 20081010
  Serious: No
  Sender: FDA-Public Use
  Company Number: PHEH2008US03699

PATIENT
  Sex: Female

DRUGS (1)
  1. VIVELLE-DOT [Suspect]
     Indication: HYSTERECTOMY
     Dosage: UNK, UNK
     Route: 062
     Dates: start: 20080225

REACTIONS (3)
  - HEADACHE [None]
  - HORMONE LEVEL ABNORMAL [None]
  - VISION BLURRED [None]
